FAERS Safety Report 14412315 (Version 1)
Quarter: 2018Q1

REPORT INFORMATION
  Report Type: Spontaneous
  Country: US (occurrence: US)
  Receive Date: 20180118
  Receipt Date: 20180118
  Transmission Date: 20180509
  Serious: Yes (Disabling)
  Sender: FDA-Public Use
  Company Number: None

PATIENT
  Sex: Female
  Weight: 101.25 kg

DRUGS (6)
  1. FELODIPINE. [Concomitant]
     Active Substance: FELODIPINE
  2. LISINOPRIL. [Concomitant]
     Active Substance: LISINOPRIL
  3. AMOXICILLIN CLAVALUNATE [Suspect]
     Active Substance: AMOXICILLIN\CLAVULANIC ACID
     Indication: OTITIS MEDIA
     Dosage: ?          QUANTITY:20 TABLET(S);?
     Route: 048
     Dates: start: 20171220, end: 20171224
  4. SERTRALINE [Concomitant]
     Active Substance: SERTRALINE HYDROCHLORIDE
  5. PANTOPRAZOLE [Concomitant]
     Active Substance: PANTOPRAZOLE
  6. AMOXICILLIN CLAVALUNATE [Suspect]
     Active Substance: AMOXICILLIN\CLAVULANIC ACID
     Indication: SINUSITIS
     Dosage: ?          QUANTITY:20 TABLET(S);?
     Route: 048
     Dates: start: 20171220, end: 20171224

REACTIONS (1)
  - Clostridium difficile infection [None]

NARRATIVE: CASE EVENT DATE: 20171226
